FAERS Safety Report 11100265 (Version 1)
Quarter: 2015Q2

REPORT INFORMATION
  Report Type: Spontaneous
  Country: US (occurrence: None)
  Receive Date: 20150507
  Receipt Date: 20150507
  Transmission Date: 20150821
  Serious: No
  Sender: FDA-Public Use
  Company Number: None

PATIENT
  Age: 39 Year
  Sex: Female
  Weight: 61.24 kg

DRUGS (6)
  1. ADVIL [Concomitant]
     Active Substance: IBUPROFEN
  2. DULOXETINE 60MG [Suspect]
     Active Substance: DULOXETINE
     Indication: ANXIETY
     Route: 048
     Dates: start: 20140601, end: 20141011
  3. ALEVE [Concomitant]
     Active Substance: NAPROXEN SODIUM
  4. LEVOTHYRIXINE [Concomitant]
  5. DULOXETINE 60MG [Suspect]
     Active Substance: DULOXETINE
     Indication: DEPRESSION
     Route: 048
     Dates: start: 20140601, end: 20141011
  6. CHEWABLE MULTI-VITAMIN [Concomitant]

REACTIONS (5)
  - Drug withdrawal syndrome [None]
  - Depression [None]
  - Decreased interest [None]
  - Panic attack [None]
  - Mood altered [None]

NARRATIVE: CASE EVENT DATE: 20140601
